FAERS Safety Report 9071973 (Version 1)
Quarter: 2013Q1

REPORT INFORMATION
  Report Type: Report from Study
  Country: US (occurrence: US)
  Receive Date: 20130129
  Receipt Date: 20130129
  Transmission Date: 20140127
  Serious: No
  Sender: FDA-Public Use
  Company Number: US-ABBOTT-12P-163-0928134-00

PATIENT
  Age: 56 Year
  Sex: Female

DRUGS (11)
  1. HUMIRA 40 MG/0.8 ML PEN [Suspect]
     Indication: CROHN^S DISEASE
     Dates: start: 2007
  2. HUMIRA 40 MG/0.8 ML PEN [Suspect]
     Dates: start: 20120419
  3. PRILOSEC [Concomitant]
     Indication: GASTRIC DISORDER
  4. ENTOCORT [Concomitant]
     Indication: CROHN^S DISEASE
     Dosage: 3 TABS ONCE A DAY
  5. DEPAKOTE [Concomitant]
     Indication: MIGRAINE
  6. ZYRTEC [Concomitant]
     Indication: HYPERSENSITIVITY
     Dosage: OVER THE COUNTER ONCE A DAY
  7. CELEXA [Concomitant]
     Indication: DEPRESSION
  8. MG [Concomitant]
     Indication: PRODUCT USED FOR UNKNOWN INDICATION
  9. D3 [Concomitant]
     Indication: PRODUCT USED FOR UNKNOWN INDICATION
  10. VITAMIN B12 [Concomitant]
     Indication: PRODUCT USED FOR UNKNOWN INDICATION
  11. MULTIVITAMINS [Concomitant]
     Indication: PRODUCT USED FOR UNKNOWN INDICATION

REACTIONS (8)
  - Unevaluable event [Unknown]
  - Injection site pain [Not Recovered/Not Resolved]
  - Injection site pain [Not Recovered/Not Resolved]
  - Malaise [Unknown]
  - Contusion [Unknown]
  - Injection site bruising [Unknown]
  - Bone density decreased [Unknown]
  - Sinusitis [Recovering/Resolving]
